FAERS Safety Report 8834445 (Version 1)
Quarter: 2012Q4

REPORT INFORMATION
  Report Type: Spontaneous
  Country: DE (occurrence: None)
  Receive Date: 20121010
  Receipt Date: 20121010
  Transmission Date: 20130627
  Serious: Yes (Life-Threatening, Hospitalization)
  Sender: FDA-Public Use
  Company Number: AEDEU201200452

PATIENT
  Age: 56 Year
  Sex: Female

DRUGS (2)
  1. GAMUNEX [Suspect]
     Indication: MULTIPLE SCLEROSIS
     Route: 042
     Dates: start: 20120504, end: 20120504
  2. METOPROLOL [Concomitant]

REACTIONS (4)
  - Anaphylactic reaction [None]
  - Eczema [None]
  - Hypoacusis [None]
  - Respiratory distress [None]
